FAERS Safety Report 4957710-7 (Version None)
Quarter: 2006Q1

REPORT INFORMATION
  Report Type: 
  Country: None (occurrence: None)
  Receive Date: 20060324
  Receipt Date: 20040426
  Transmission Date: 20060701
  Serious: Yes (Other)
  Sender: FDA-Public Use
  Company Number: 2004-017

PATIENT
  Age: 47 Year
  Sex: Male
  Weight: 95.2554 kg

DRUGS (10)
  1. LIDOCAINE 2% [Suspect]
     Indication: LOCAL ANAESTHESIA
     Dosage: PRN TOPICAL
     Route: 061
  2. LIDOCAINE 2% [Suspect]
  3. MYDFRIN [Concomitant]
  4. CYCLOGYL 1% [Concomitant]
  5. VERSED [Concomitant]
  6. STADOL [Concomitant]
  7. EPINEPHRINE [Concomitant]
  8. XYLOCAINE [Concomitant]
  9. VANCOMYCIN [Concomitant]
  10. VISCOAT. [Concomitant]

REACTIONS (3)
  - EYE DISORDER [None]
  - OFF LABEL USE [None]
  - POST PROCEDURAL COMPLICATION [None]
